FAERS Safety Report 7099223-5 (Version None)
Quarter: 2010Q4

REPORT INFORMATION
  Report Type: 
  Country: None (occurrence: None)
  Receive Date: 20101112
  Receipt Date: 20101102
  Transmission Date: 20110411
  Serious: Yes (Other)
  Sender: FDA-Public Use
  Company Number: IT-JNJFOC-20101100993

PATIENT
  Age: 33 Year
  Sex: Female

DRUGS (3)
  1. RISPERDAL [Suspect]
     Indication: ILL-DEFINED DISORDER
     Route: 048
  2. CITALOPRAM [Suspect]
     Indication: ILL-DEFINED DISORDER
     Route: 048
  3. RIVOTRIL [Suspect]
     Indication: ILL-DEFINED DISORDER

REACTIONS (2)
  - MULTIPLE DRUG OVERDOSE INTENTIONAL [None]
  - SELF INJURIOUS BEHAVIOUR [None]
